FAERS Safety Report 18628939 (Version 1)
Quarter: 2020Q4

REPORT INFORMATION
  Report Type: Spontaneous
  Country: JP (occurrence: JP)
  Receive Date: 20201217
  Receipt Date: 20201217
  Transmission Date: 20210114
  Serious: Yes (Other)
  Sender: FDA-Public Use
  Company Number: JP-PFIZER INC-2020494607

PATIENT

DRUGS (2)
  1. LENDORMIN [Suspect]
     Active Substance: BROTIZOLAM
     Dosage: UNK
     Route: 048
  2. HALCION [Suspect]
     Active Substance: TRIAZOLAM
     Dosage: UNK
     Route: 048

REACTIONS (3)
  - Delirium [Unknown]
  - Withdrawal syndrome [Unknown]
  - Insomnia [Unknown]
